FAERS Safety Report 5129181-1 (Version None)
Quarter: 2006Q4

REPORT INFORMATION
  Report Type: 
  Country: None (occurrence: None)
  Receive Date: 20061011
  Receipt Date: 20060927
  Transmission Date: 20070319
  Serious: Yes (Death, Other)
  Sender: FDA-Public Use
  Company Number: CA200609006804

PATIENT
  Age: 78 Year
  Sex: Female

DRUGS (3)
  1. ZYPREXA [Suspect]
     Indication: BIPOLAR DISORDER
     Dosage: SEE IMAGE, ORAL
     Route: 048
     Dates: start: 20060901, end: 20060901
  2. ZYPREXA [Suspect]
     Indication: BIPOLAR DISORDER
     Dosage: SEE IMAGE, ORAL
     Route: 048
     Dates: start: 20060901
  3. CELEXA [Concomitant]

REACTIONS (1)
  - PULMONARY OEDEMA [None]
